FAERS Safety Report 4824037-3 (Version None)
Quarter: 2005Q4

REPORT INFORMATION
  Report Type: 
  Country: None (occurrence: None)
  Receive Date: 20051108
  Receipt Date: 20051026
  Transmission Date: 20060501
  Serious: Yes (Hospitalization)
  Sender: FDA-Public Use
  Company Number: FRWYE089126OCT05

PATIENT
  Age: 34 Year
  Sex: Female

DRUGS (1)
  1. ADEPAL (LEVONORGESTREL/ETHINYL ESTRADIOL, TABLET, 0) [Suspect]
     Indication: CONTRACEPTION
     Dosage: 1 TABLET 1X PER 1 DAY ORAL
     Route: 048
     Dates: start: 19990101

REACTIONS (4)
  - ANTINUCLEAR ANTIBODY POSITIVE [None]
  - RENAL EMBOLISM [None]
  - RENAL IMPAIRMENT [None]
  - RENAL INFARCT [None]
